FAERS Safety Report 18455793 (Version 1)
Quarter: 2020Q4

REPORT INFORMATION
  Report Type: Other
  Country: GR (occurrence: GR)
  Receive Date: 20201102
  Receipt Date: 20201102
  Transmission Date: 20210114
  Serious: Yes (Death, Other)
  Sender: FDA-Public Use
  Company Number: GR-ROCHE-2133624

PATIENT
  Age: 47 Year
  Sex: Female

DRUGS (3)
  1. METHYLPREDNISOLONE. [Concomitant]
     Active Substance: METHYLPREDNISOLONE
     Route: 042
  2. RITUXIMAB. [Suspect]
     Active Substance: RITUXIMAB
     Indication: ANTIPHOSPHOLIPID SYNDROME
     Route: 041
  3. CORTISONE [Concomitant]
     Active Substance: CORTISONE
     Indication: ANTIPHOSPHOLIPID SYNDROME

REACTIONS (3)
  - Off label use [Unknown]
  - Intentional product use issue [Unknown]
  - Lower respiratory tract infection [Fatal]
